FAERS Safety Report 9989278 (Version 1)
Quarter: 2014Q1

REPORT INFORMATION
  Report Type: Spontaneous
  Country: NO (occurrence: NO)
  Receive Date: 20140310
  Receipt Date: 20140310
  Transmission Date: 20141002
  Serious: Yes (Hospitalization)
  Sender: FDA-Public Use
  Company Number: NO-JNJFOC-20140303801

PATIENT
  Sex: Female
  Weight: 64.3 kg

DRUGS (11)
  1. XARELTO [Suspect]
     Indication: CEREBROVASCULAR ACCIDENT PROPHYLAXIS
     Route: 048
     Dates: start: 2012, end: 20140131
  2. XARELTO [Suspect]
     Indication: ATRIAL FIBRILLATION
     Route: 048
     Dates: start: 2012, end: 20140131
  3. NORVASC [Concomitant]
     Route: 048
  4. SELO-ZOK [Concomitant]
     Route: 048
  5. PARACET [Concomitant]
     Indication: PAIN
     Route: 048
  6. BURINEX [Concomitant]
     Route: 048
  7. DUROFERON [Concomitant]
     Route: 048
     Dates: end: 20140131
  8. ZOCOR [Concomitant]
     Route: 048
  9. SOMAC [Concomitant]
     Route: 048
  10. SPIRIX [Concomitant]
     Route: 048
  11. HIPREX [Concomitant]
     Route: 048

REACTIONS (2)
  - Gastroduodenitis [Unknown]
  - Haemorrhagic anaemia [Unknown]
